FAERS Safety Report 10269276 (Version 2)
Quarter: 2014Q4

REPORT INFORMATION
  Report Type: Spontaneous
  Country: IT (occurrence: IT)
  Receive Date: 20140701
  Receipt Date: 20141003
  Transmission Date: 20150528
  Serious: Yes (Hospitalization)
  Sender: FDA-Public Use
  Company Number: IT-ROCHE-1427035

PATIENT
  Age: 45 Year
  Sex: Male

DRUGS (3)
  1. NANDROLONE DECANOATE. [Suspect]
     Active Substance: NANDROLONE DECANOATE
     Indication: PRODUCT USED FOR UNKNOWN INDICATION
     Route: 030
     Dates: start: 20140510, end: 20140610
  2. SOMATROPIN [Suspect]
     Active Substance: SOMATROPIN
     Indication: DOPAMINERGIC DRUG THERAPY
     Dosage: 4 UNITS
     Route: 058
     Dates: start: 20140410, end: 20140610
  3. TESTOSTERONE. [Suspect]
     Active Substance: TESTOSTERONE
     Indication: PRODUCT USED FOR UNKNOWN INDICATION
     Route: 030
     Dates: start: 20140510, end: 20140610

REACTIONS (3)
  - Substance abuse [Unknown]
  - Ventricular hypertrophy [Not Recovered/Not Resolved]
  - Off label use [Unknown]

NARRATIVE: CASE EVENT DATE: 20140410
